FAERS Safety Report 5371051-8 (Version None)
Quarter: 2007Q2

REPORT INFORMATION
  Report Type: 
  Country: None (occurrence: None)
  Receive Date: 20070626
  Receipt Date: 20070614
  Transmission Date: 20071010
  Serious: Yes (Other)
  Sender: FDA-Public Use
  Company Number: US-PFIZER INC-2007049970

PATIENT
  Age: 56 Year
  Sex: Male
  Weight: 104.54 kg

DRUGS (1)
  1. CHANTIX [Suspect]
     Indication: SMOKING CESSATION THERAPY
     Route: 048

REACTIONS (7)
  - CEREBROVASCULAR ACCIDENT [None]
  - EYE SWELLING [None]
  - FACIAL PALSY [None]
  - LACRIMATION INCREASED [None]
  - LIP SWELLING [None]
  - SPEECH DISORDER [None]
  - SWELLING FACE [None]
